FAERS Safety Report 5602457-7 (Version None)
Quarter: 2008Q1

REPORT INFORMATION
  Report Type: 
  Country: None (occurrence: None)
  Receive Date: 20080125
  Receipt Date: 20080125
  Transmission Date: 20080703
  Serious: Yes (Other)
  Sender: FDA-Public Use
  Company Number: A0705428A

PATIENT
  Age: 53 Year
  Sex: Female

DRUGS (7)
  1. ALLI [Suspect]
     Route: 048
  2. ASPIRIN [Concomitant]
  3. FISH OIL [Concomitant]
  4. CO Q10 [Concomitant]
  5. GRAPE SEED [Concomitant]
  6. GINSENG [Concomitant]
  7. FOLIC ACID/ VITAMIN B6/ VITAMIN B 12 [Concomitant]
     Route: 048

REACTIONS (3)
  - ASTHENIA [None]
  - FOOD POISONING [None]
  - HAEMATEMESIS [None]
